FAERS Safety Report 7323694-X (Version None)
Quarter: 2011Q1

REPORT INFORMATION
  Report Type: 
  Country: None (occurrence: None)
  Receive Date: 20110301
  Receipt Date: 20100602
  Transmission Date: 20110831
  Serious: Yes (Hospitalization)
  Sender: FDA-Public Use
  Company Number: US-BAYER-201016909NA

PATIENT
  Sex: Female
  Weight: 104.31 kg

DRUGS (15)
  1. GLUCOPHAGE [Concomitant]
  2. CEFUROXIME [Concomitant]
     Dosage: 500 MG, UNK
     Dates: start: 20090201
  3. LORAZEPAM [Concomitant]
     Dosage: 0.5 MG, UNK
  4. PROVERA [Concomitant]
     Dosage: UNK
     Dates: start: 20090101
  5. PROZAC [Concomitant]
     Indication: DEPRESSION
     Dosage: 20 MG, UNK
  6. FLUCONAZOLE [Concomitant]
     Dosage: 150 MG, UNK
  7. YAZ [Suspect]
     Indication: PREMENSTRUAL SYNDROME
     Dosage: UNK UNK, QD
     Route: 048
     Dates: start: 20090101, end: 20090501
  8. CYMBALTA [Concomitant]
  9. SYNTHROID [Concomitant]
  10. UNCODEABLE ^UNCLASSIFIABLE^ [Concomitant]
  11. NSAID'S [Concomitant]
  12. LEVOTHYROXINE SODIUM [Concomitant]
     Dosage: UNK
     Dates: start: 20070101
  13. METFORMIN [Concomitant]
     Indication: DIABETES MELLITUS
     Dosage: 500 MG, UNK
     Dates: start: 20020101
  14. SULFAMETHOXAZOLE AND TRIMETHOPRIM DOUBLE STRENGTH [Concomitant]
  15. MEDROXYPROGESTERONE ACETATE [Concomitant]
     Dosage: 10 MG, UNK

REACTIONS (7)
  - NAUSEA [None]
  - PULMONARY EMBOLISM [None]
  - WEIGHT INCREASED [None]
  - CHEST PAIN [None]
  - MENTAL DISORDER [None]
  - DYSPNOEA [None]
  - PALPITATIONS [None]
